FAERS Safety Report 10368226 (Version 20)
Quarter: 2015Q2

REPORT INFORMATION
  Report Type: Spontaneous
  Country: IL (occurrence: IL)
  Receive Date: 20140807
  Receipt Date: 20150625
  Transmission Date: 20150821
  Serious: Yes (Other)
  Sender: FDA-Public Use
  Company Number: IL-PFIZER INC-2014092243

PATIENT
  Age: 55 Year
  Sex: Male

DRUGS (8)
  1. AMLO [Concomitant]
     Dosage: UNK
     Route: 048
  2. TRITACE [Concomitant]
     Active Substance: RAMIPRIL
     Route: 048
  3. ELTROXIN [Concomitant]
     Active Substance: LEVOTHYROXINE
     Route: 048
  4. OMEPRADEX [Concomitant]
     Active Substance: OMEPRAZOLE
     Route: 048
  5. JANUVIA [Concomitant]
     Active Substance: SITAGLIPTIN PHOSPHATE
     Route: 048
  6. RECLAST [Concomitant]
     Active Substance: ZOLEDRONIC ACID
  7. SUTENT [Suspect]
     Active Substance: SUNITINIB MALATE
     Indication: RENAL CELL CARCINOMA
     Dosage: 50 MG, ONCE DAILY, TWO WEEKS TREATMENT ONE WEEK BREAK
     Route: 048
     Dates: start: 20080301
  8. ALLORIL [Concomitant]
     Route: 048

REACTIONS (31)
  - Nausea [Not Recovered/Not Resolved]
  - Blood thyroid stimulating hormone increased [Unknown]
  - Dry skin [Not Recovered/Not Resolved]
  - Skin exfoliation [Recovering/Resolving]
  - Subcutaneous abscess [Not Recovered/Not Resolved]
  - Decreased appetite [Recovering/Resolving]
  - Skin haemorrhage [Unknown]
  - Vomiting [Not Recovered/Not Resolved]
  - Oral pain [Not Recovered/Not Resolved]
  - Pyrexia [Recovered/Resolved]
  - Renal cell carcinoma [Unknown]
  - Erythema [Unknown]
  - Musculoskeletal pain [Recovering/Resolving]
  - Dyspepsia [Recovering/Resolving]
  - Skin irritation [Unknown]
  - Diarrhoea [Not Recovered/Not Resolved]
  - Bone pain [Unknown]
  - Nasopharyngitis [Recovering/Resolving]
  - Dizziness [Recovered/Resolved]
  - Abdominal pain [Not Recovered/Not Resolved]
  - Disease progression [Unknown]
  - Blood creatinine increased [Unknown]
  - Constipation [Not Recovered/Not Resolved]
  - Asthenia [Not Recovered/Not Resolved]
  - Pain in extremity [Recovered/Resolved]
  - Abdominal pain upper [Not Recovered/Not Resolved]
  - Cough [Recovering/Resolving]
  - Fall [Unknown]
  - Chest pain [Recovering/Resolving]
  - Blood magnesium decreased [Unknown]
  - Fatigue [Not Recovered/Not Resolved]

NARRATIVE: CASE EVENT DATE: 2014
